FAERS Safety Report 9693262 (Version 1)
Quarter: 2013Q4

REPORT INFORMATION
  Report Type: Spontaneous
  Country: US (occurrence: US)
  Receive Date: 20131118
  Receipt Date: 20131118
  Transmission Date: 20140711
  Serious: No
  Sender: FDA-Public Use
  Company Number: US-BAYER-2013-140518

PATIENT
  Sex: Female

DRUGS (2)
  1. ALEVE CAPLET [Suspect]
     Indication: MIGRAINE
     Dosage: 2 DF, UNK
  2. MOTRIN [Suspect]
     Indication: MIGRAINE
     Dosage: 1800 MG, UNK

REACTIONS (1)
  - Off label use [None]
